FAERS Safety Report 7185377-9 (Version None)
Quarter: 2010Q4

REPORT INFORMATION
  Report Type: 
  Country: None (occurrence: None)
  Receive Date: 20101222
  Receipt Date: 20100603
  Transmission Date: 20110411
  Serious: No
  Sender: FDA-Public Use
  Company Number: US-AMGEN-TCS416012

PATIENT

DRUGS (10)
  1. ENBREL [Suspect]
     Indication: PSORIASIS
     Dosage: 50 MG, 2 TIMES/WK
     Route: 058
     Dates: start: 20041124, end: 20100301
  2. VITAMINS [Concomitant]
     Dosage: UNK UNK, UNK
  3. ESOMEPRAZOLE MAGNESIUM [Concomitant]
     Dosage: UNK UNK, UNK
  4. FLUOXETINE [Concomitant]
     Dosage: UNK UNK, UNK
  5. GLIPIZIDE [Concomitant]
     Dosage: UNK UNK, UNK
  6. PRAVASTATIN [Concomitant]
     Dosage: UNK UNK, UNK
  7. METFORMIN [Concomitant]
     Dosage: UNK UNK, UNK
  8. HYDROCHLOROTHIAZIDE [Concomitant]
     Dosage: UNK UNK, UNK
  9. METOPROLOL [Concomitant]
     Dosage: UNK UNK, UNK
  10. COLECALCIFEROL [Concomitant]

REACTIONS (2)
  - LIVER FUNCTION TEST ABNORMAL [None]
  - PSORIASIS [None]
